FAERS Safety Report 4630827-2 (Version None)
Quarter: 2005Q2

REPORT INFORMATION
  Report Type: 
  Country: None (occurrence: None)
  Receive Date: 20050406
  Receipt Date: 20050328
  Transmission Date: 20051028
  Serious: Yes (Hospitalization)
  Sender: FDA-Public Use
  Company Number: TPA2005A00361

PATIENT
  Age: 65 Year
  Sex: Female
  Weight: 76.2043 kg

DRUGS (13)
  1. ACTOS [Suspect]
     Indication: DIABETES MELLITUS NON-INSULIN-DEPENDENT
     Dosage: SEE IMAGE
     Route: 048
     Dates: start: 20030328
  2. NOVALOG (INSULIN ASPART) [Concomitant]
  3. LANTUS [Concomitant]
  4. CAPTOPRIL [Concomitant]
  5. MICRO-K (POTASSIUM CHLORIDE) [Concomitant]
  6. FUROSEMIDE [Concomitant]
  7. ALDACTONE [Concomitant]
  8. ZETIA [Concomitant]
  9. PLAVIX [Concomitant]
  10. VITAMIN E [Concomitant]
  11. ASPIRIN [Concomitant]
  12. TIMOLOL MALEATE [Concomitant]
  13. XALATAN [Concomitant]

REACTIONS (5)
  - BLOOD GLUCOSE INCREASED [None]
  - FEELING ABNORMAL [None]
  - HYPOTENSION [None]
  - PNEUMONIA [None]
  - WEIGHT DECREASED [None]
